FAERS Safety Report 9610957 (Version 1)
Quarter: 2013Q4

REPORT INFORMATION
  Report Type: Report from Study
  Country: JP (occurrence: JP)
  Receive Date: 20131009
  Receipt Date: 20131009
  Transmission Date: 20140711
  Serious: Yes (Hospitalization, Other)
  Sender: FDA-Public Use
  Company Number: JP-TAKEDA-TCI2013A05942

PATIENT
  Age: 66 Year
  Sex: Male
  Weight: 64 kg

DRUGS (11)
  1. ALOGLIPTIN [Suspect]
     Indication: TYPE 2 DIABETES MELLITUS
     Dosage: 25 MG, QD
     Route: 048
     Dates: start: 20111121, end: 20120120
  2. JUVELA N [Concomitant]
     Route: 048
  3. JUVELA N [Concomitant]
     Route: 048
  4. THEOLONG [Concomitant]
     Route: 048
  5. LANIRAPID [Concomitant]
     Route: 048
  6. LANIRAPID [Concomitant]
     Route: 048
  7. MICARDIS [Concomitant]
     Route: 048
  8. MICARDIS [Concomitant]
     Route: 048
  9. COVERSYL                           /00790702/ [Concomitant]
     Route: 048
  10. SPIRIVA [Concomitant]
     Route: 055
  11. COVERSYL [Concomitant]
     Route: 048

REACTIONS (1)
  - Cerebral haemorrhage [Recovering/Resolving]
